FAERS Safety Report 6458821-X (Version None)
Quarter: 2009Q4

REPORT INFORMATION
  Report Type: 
  Country: None (occurrence: None)
  Receive Date: 20091127
  Receipt Date: 20091118
  Transmission Date: 20100525
  Serious: Yes (Other)
  Sender: FDA-Public Use
  Company Number: JP-ROCHE-671076

PATIENT
  Sex: Female

DRUGS (5)
  1. TAMIFLU [Suspect]
     Dosage: TAMIFLU DRY SYRUP 3 %.DOSE, FREQUENCY UNSPECIFIED.
     Route: 048
     Dates: start: 20091116, end: 20091117
  2. ASVERIN [Suspect]
     Indication: DRUG USE FOR UNKNOWN INDICATION
     Dosage: DOSE, FREQUENCY UNSPECIFIED.FORM:ORAL FORMULATION.
     Route: 048
  3. MUCODYNE [Suspect]
     Indication: DRUG USE FOR UNKNOWN INDICATION
     Dosage: DOSE, FREQUENCY UNSPECIFIED.FORM:ORAL FORMULATION.
     Route: 048
  4. CALONAL [Suspect]
     Indication: DRUG USE FOR UNKNOWN INDICATION
     Dosage: DOSE, FREQUENCY UNSPECIFIED.FORM:ORAL FORMULATION.
     Route: 048
  5. PERIACTIN [Suspect]
     Indication: DRUG USE FOR UNKNOWN INDICATION
     Dosage: DOSE, FREQUENCY UNSPECIFIED.FORM:ORAL FORMULATION.
     Route: 048

REACTIONS (1)
  - ABNORMAL BEHAVIOUR [None]
